FAERS Safety Report 4737910-1 (Version None)
Quarter: 2005Q3

REPORT INFORMATION
  Report Type: 
  Country: None (occurrence: None)
  Receive Date: 20050809
  Receipt Date: 20050728
  Transmission Date: 20060218
  Serious: Yes (Death)
  Sender: FDA-Public Use
  Company Number: FR-JNJFOC-20050703738

PATIENT
  Age: 61 Year
  Sex: Male
  Weight: 63 kg

DRUGS (6)
  1. REMICADE [Suspect]
     Dosage: 5MG/KG. 24TH INFUSION.
     Route: 042
  2. REMICADE [Suspect]
     Indication: RHEUMATOID ARTHRITIS
     Dosage: 3MG/KG.
     Route: 042
  3. PRAVASTATIN [Suspect]
     Route: 048
  4. METHOTREXATE [Concomitant]
     Indication: RHEUMATOID ARTHRITIS
     Route: 048
  5. OROCAL [Concomitant]
     Indication: OSTEOPOROSIS
     Route: 048
  6. FOSAMAX [Concomitant]
     Indication: OSTEOPOROSIS
     Route: 048

REACTIONS (1)
  - MYOCARDIAL INFARCTION [None]
